FAERS Safety Report 8341270-7 (Version None)
Quarter: 2012Q2

REPORT INFORMATION
  Report Type: 
  Country: None (occurrence: None)
  Receive Date: 20120507
  Receipt Date: 20120425
  Transmission Date: 20120825
  Serious: Yes (Death, Hospitalization)
  Sender: FDA-Public Use
  Company Number: US-ROCHE-1008643

PATIENT
  Sex: Female

DRUGS (1)
  1. ZELBORAF [Suspect]
     Indication: METASTATIC MALIGNANT MELANOMA
     Route: 048
     Dates: start: 20111010

REACTIONS (5)
  - WHITE BLOOD CELL COUNT DECREASED [None]
  - DEHYDRATION [None]
  - PLATELET COUNT DECREASED [None]
  - DISEASE PROGRESSION [None]
  - INFECTION [None]
